FAERS Safety Report 8343806-9 (Version None)
Quarter: 2012Q2

REPORT INFORMATION
  Report Type: 
  Country: None (occurrence: None)
  Receive Date: 20120503
  Receipt Date: 20120425
  Transmission Date: 20120825
  Serious: Yes (Death, Hospitalization)
  Sender: FDA-Public Use
  Company Number: 2012SP022071

PATIENT
  Age: 61 Year
  Sex: Male
  Weight: 94 kg

DRUGS (6)
  1. RIBAVIRIN [Suspect]
     Indication: HEPATITIS C
     Dosage: 2400 MG;PO ; 200 MG;PO
     Route: 048
     Dates: start: 20111120
  2. RIBAVIRIN [Suspect]
     Indication: HEPATITIS C
     Dosage: 2400 MG;PO ; 200 MG;PO
     Route: 048
     Dates: end: 20120414
  3. VICTRELIS [Suspect]
     Indication: HEPATITIS C
     Dosage: 2400 MG;QD;PO
     Route: 048
     Dates: start: 20111218, end: 20120414
  4. PEGINTERFERON ALFA-2A [Suspect]
     Indication: HEPATITIS C
     Dosage: 90 MCG;SC
     Route: 058
     Dates: start: 20111120, end: 20120414
  5. FUROSEMIDE [Concomitant]
  6. SPIRONOLACTONE [Concomitant]

REACTIONS (10)
  - CONTUSION [None]
  - VASCULITIS [None]
  - ASCITES [None]
  - JOINT SWELLING [None]
  - ALANINE AMINOTRANSFERASE INCREASED [None]
  - HEPATIC CIRRHOSIS [None]
  - ABDOMINAL PAIN [None]
  - HAEMOLYTIC ANAEMIA [None]
  - SPLENOMEGALY [None]
  - PYREXIA [None]
